FAERS Safety Report 19736943 (Version 6)
Quarter: 2022Q2

REPORT INFORMATION
  Report Type: Report from Study
  Country: CA (occurrence: CA)
  Receive Date: 20210823
  Receipt Date: 20220425
  Transmission Date: 20220721
  Serious: Yes (Hospitalization, Other)
  Sender: FDA-Public Use
  Company Number: NVSC2021CA185756

PATIENT
  Sex: Female

DRUGS (1)
  1. KISQALI [Suspect]
     Active Substance: RIBOCICLIB
     Indication: Breast cancer metastatic
     Dosage: UNK
     Route: 048
     Dates: start: 20210720

REACTIONS (7)
  - Pneumonia [Unknown]
  - Neutropenia [Unknown]
  - Haemorrhage [Unknown]
  - Liver disorder [Unknown]
  - Rash macular [Unknown]
  - Rash [Unknown]
  - Product availability issue [Unknown]
